FAERS Safety Report 4619365-0 (Version None)
Quarter: 2005Q2

REPORT INFORMATION
  Report Type: 
  Country: None (occurrence: None)
  Receive Date: 20050325
  Receipt Date: 20050125
  Transmission Date: 20051028
  Serious: No
  Sender: FDA-Public Use
  Company Number: 0204002

PATIENT
  Age: 81 Year
  Sex: Male
  Weight: 78.9259 kg

DRUGS (4)
  1. DEPODUR [Suspect]
     Indication: POST PROCEDURAL PAIN
     Dosage: (15 MG, ONCE), EPIDURAL
     Route: 008
     Dates: start: 20041021, end: 20041021
  2. FENTANYL [Concomitant]
  3. DESFLURANE (DESFLURANE) [Concomitant]
  4. PROPOFOL [Concomitant]

REACTIONS (3)
  - DEPRESSED LEVEL OF CONSCIOUSNESS [None]
  - RENAL FAILURE [None]
  - RESPIRATORY DEPRESSION [None]
